FAERS Safety Report 9510641 (Version 3)
Quarter: 2014Q2

REPORT INFORMATION
  Report Type: Spontaneous
  Country: GB (occurrence: GB)
  Receive Date: 20130909
  Receipt Date: 20140402
  Transmission Date: 20141212
  Serious: Yes (Other)
  Sender: FDA-Public Use
  Company Number: GB-ACTAVIS-2013-16284

PATIENT
  Sex: Male

DRUGS (3)
  1. ANTABUSE [Suspect]
     Indication: ALCOHOLISM
     Dosage: 200 MG, DAILY
     Route: 065
  2. ORAMORPH [Interacting]
     Indication: PRODUCT USED FOR UNKNOWN INDICATION
     Dosage: 10 MG UNK. 40 CAPSULES OF 10MG
     Route: 048
  3. METRONIDAZOLE [Concomitant]
     Indication: PRODUCT USED FOR UNKNOWN INDICATION
     Dosage: UNK
     Route: 042

REACTIONS (5)
  - Confusional state [Unknown]
  - Disorientation [Unknown]
  - Nausea [Unknown]
  - Malaise [Unknown]
  - Drug interaction [Unknown]
